FAERS Safety Report 8958891 (Version 1)
Quarter: 2012Q4

REPORT INFORMATION
  Report Type: 
  Country: US (occurrence: US)
  Receive Date: 20121211
  Receipt Date: 20121211
  Transmission Date: 20130627
  Serious: No
  Sender: FDA-Public Use
  Company Number: US-B.I. PHARMACEUTICALS,INC./RIDGEFIELD-2012-BI-02287BP

PATIENT
  Age: 29 Year
  Sex: Female

DRUGS (3)
  1. ZANTAC 150 (RANITIDINE HYDROCHLORIDE) [Suspect]
     Indication: DYSPEPSIA
     Dosage: 300 mg
     Route: 048
     Dates: start: 20121203, end: 20121203
  2. LISINOPRIL [Concomitant]
     Indication: BLOOD PRESSURE
     Route: 048
  3. BUSPIRONE [Concomitant]
     Indication: ANXIETY
     Dosage: 10 mg
     Route: 048

REACTIONS (1)
  - Mental impairment [Not Recovered/Not Resolved]
